FAERS Safety Report 8337145-X (Version None)
Quarter: 2012Q2

REPORT INFORMATION
  Report Type: 
  Country: None (occurrence: None)
  Receive Date: 20120504
  Receipt Date: 20110626
  Transmission Date: 20120825
  Serious: No
  Sender: FDA-Public Use
  Company Number: US-TEVA-2011003887

PATIENT
  Sex: Female
  Weight: 61.29 kg

DRUGS (3)
  1. WELLBUTRIN XL [Suspect]
     Dosage: 150 MILLIGRAM;
     Dates: start: 20110401, end: 20110101
  2. WELLBUTRIN XL [Suspect]
     Dosage: 300 MILLIGRAM;
     Dates: start: 20110101
  3. NUVIGIL [Suspect]
     Indication: SOMNOLENCE
     Dosage: 250 MILLIGRAM;
     Route: 048
     Dates: start: 20100626

REACTIONS (1)
  - RASH PRURITIC [None]
